FAERS Safety Report 8264534-4 (Version None)
Quarter: 2012Q2

REPORT INFORMATION
  Report Type: 
  Country: None (occurrence: None)
  Receive Date: 20120406
  Receipt Date: 20120330
  Transmission Date: 20120825
  Serious: Yes (Other)
  Sender: FDA-Public Use
  Company Number: US-AMGEN-USASP2011036205

PATIENT
  Age: 45 Year
  Sex: Female

DRUGS (2)
  1. ENBREL [Suspect]
     Indication: RHEUMATOID ARTHRITIS
     Dosage: 50 MG, QWK
     Dates: start: 19980101
  2. TREXALL [Concomitant]
     Dosage: 1 MG, QWK
     Dates: start: 19980101

REACTIONS (5)
  - THALASSAEMIA BETA [None]
  - HYPOAESTHESIA [None]
  - HERPES ZOSTER [None]
  - PARAESTHESIA [None]
  - RHEUMATOID ARTHRITIS [None]
